FAERS Safety Report 7977186-5 (Version None)
Quarter: 2011Q4

REPORT INFORMATION
  Report Type: 
  Country: None (occurrence: None)
  Receive Date: 20111213
  Receipt Date: 20111107
  Transmission Date: 20120403
  Serious: No
  Sender: FDA-Public Use
  Company Number: US-AMGEN-USASP2011020226

PATIENT
  Age: 76 Year
  Sex: Male
  Weight: 77.551 kg

DRUGS (4)
  1. ARAVA [Concomitant]
  2. ENBREL [Suspect]
  3. ENBREL [Suspect]
     Dates: start: 20110314
  4. ENBREL [Suspect]
     Indication: RHEUMATOID ARTHRITIS
     Dosage: 50 MG, QWK
     Route: 058
     Dates: start: 20110311

REACTIONS (6)
  - PARAESTHESIA [None]
  - RHEUMATOID ARTHRITIS [None]
  - BACK PAIN [None]
  - PAIN IN EXTREMITY [None]
  - MUSCULOSKELETAL STIFFNESS [None]
  - ARTHRALGIA [None]
